FAERS Safety Report 17439774 (Version 1)
Quarter: 2020Q1

REPORT INFORMATION
  Report Type: Spontaneous
  Country: US (occurrence: US)
  Receive Date: 20200220
  Receipt Date: 20200220
  Transmission Date: 20200409
  Serious: Yes (Other)
  Sender: FDA-Public Use
  Company Number: US-TAKEDA-2020TUS009855

PATIENT
  Age: 29 Year
  Sex: Female

DRUGS (1)
  1. TRINTELLIX [Suspect]
     Active Substance: VORTIOXETINE HYDROBROMIDE
     Indication: DEPRESSION
     Dosage: UNK
     Route: 065
     Dates: start: 20200124, end: 2020

REACTIONS (4)
  - Hallucination [Unknown]
  - Psychotic disorder [Unknown]
  - Insomnia [Unknown]
  - Mydriasis [Unknown]

NARRATIVE: CASE EVENT DATE: 20200208
